FAERS Safety Report 4635012-6 (Version None)
Quarter: 2005Q2

REPORT INFORMATION
  Report Type: 
  Country: None (occurrence: None)
  Receive Date: 20050411
  Receipt Date: 20050401
  Transmission Date: 20051028
  Serious: Yes (Other)
  Sender: FDA-Public Use
  Company Number: 2005032232

PATIENT
  Age: 77 Year
  Sex: Female
  Weight: 53.0709 kg

DRUGS (4)
  1. BEXTRA [Suspect]
     Indication: RHEUMATOID ARTHRITIS
     Dosage: 10 MG (10 MG, 1 IN 1 D), ORAL
     Route: 048
     Dates: start: 20041001
  2. IBUPROFEN [Suspect]
     Indication: RHEUMATOID ARTHRITIS
     Dosage: 800 MG (200 MG, 4 IN 1 D), ORAL
     Route: 048
     Dates: end: 20041001
  3. LEVOTHYROXINE SODIUM [Concomitant]
  4. CONJUGATED ESTROGENS [Concomitant]

REACTIONS (5)
  - ABASIA [None]
  - ARTHRITIS [None]
  - BACK PAIN [None]
  - DISEASE PROGRESSION [None]
  - WEIGHT GAIN POOR [None]
